FAERS Safety Report 24867604 (Version 1)
Quarter: 2025Q1

REPORT INFORMATION
  Report Type: Spontaneous
  Country: CA (occurrence: CA)
  Receive Date: 20250121
  Receipt Date: 20250121
  Transmission Date: 20250409
  Serious: Yes (Hospitalization)
  Sender: PERRIGO
  Company Number: CA-PERRIGO-25CA000908

PATIENT
  Age: 17 Year
  Sex: Female
  Weight: 49 kg

DRUGS (5)
  1. IBUPROFEN [Suspect]
     Active Substance: IBUPROFEN
     Indication: Postoperative analgesia
     Dosage: 600 MG, TID
     Route: 048
  2. IBUPROFEN [Suspect]
     Active Substance: IBUPROFEN
     Indication: Dental operation
  3. DEXAMETHASONE [Concomitant]
     Active Substance: DEXAMETHASONE
     Indication: Product used for unknown indication
     Route: 065
  4. MARVELON [Concomitant]
     Active Substance: DESOGESTREL\ETHINYL ESTRADIOL
     Indication: Product used for unknown indication
     Route: 065
  5. OXYCODONE AND ACETAMINOPHEN [Concomitant]
     Active Substance: ACETAMINOPHEN\OXYCODONE HYDROCHLORIDE
     Indication: Product used for unknown indication
     Route: 065

REACTIONS (8)
  - Abdominal pain [Recovered/Resolved]
  - Dyspnoea [Recovered/Resolved]
  - Epigastric discomfort [Recovered/Resolved]
  - Gastritis erosive [Recovered/Resolved]
  - Haematemesis [Recovered/Resolved]
  - Red blood cell count decreased [Recovered/Resolved]
  - Suprapubic pain [Recovered/Resolved]
  - Upper gastrointestinal haemorrhage [Recovered/Resolved]
